FAERS Safety Report 4970425-4 (Version None)
Quarter: 2006Q2

REPORT INFORMATION
  Report Type: 
  Country: None (occurrence: None)
  Receive Date: 20060406
  Receipt Date: 20060328
  Transmission Date: 20061013
  Serious: Yes (Other)
  Sender: FDA-Public Use
  Company Number: 2006043416

PATIENT
  Age: 80 Year
  Sex: Female
  Weight: 61.2356 kg

DRUGS (5)
  1. ALPRAZOLAM [Suspect]
     Indication: SLEEP DISORDER
     Dosage: 0.5 MG (0.5 MG, 1 IN 1 D),
     Dates: start: 20010101, end: 20060301
  2. ALL OTHER NON-THERAPEUTIC PRODUCTS (ALL OTHER NON-THERAPEUTIC PRODUCTS [Suspect]
     Indication: ILL-DEFINED DISORDER
  3. ZIAC [Concomitant]
  4. LUNESTA [Concomitant]
  5. ANTIHISTAMINES (ANTIHISTAMINES) [Concomitant]

REACTIONS (6)
  - CHEST PAIN [None]
  - DRUG HYPERSENSITIVITY [None]
  - DYSPEPSIA [None]
  - ERUCTATION [None]
  - GASTROOESOPHAGEAL REFLUX DISEASE [None]
  - URTICARIA [None]
